FAERS Safety Report 13111359 (Version 2)
Quarter: 2017Q1

REPORT INFORMATION
  Report Type: Spontaneous
  Country: US (occurrence: US)
  Receive Date: 20170112
  Receipt Date: 20170223
  Transmission Date: 20170428
  Serious: Yes (Hospitalization)
  Sender: FDA-Public Use
  Company Number: US-BAUSCH-BL-2017-000823

PATIENT
  Age: 63 Year
  Sex: Male

DRUGS (1)
  1. XENAZINE [Suspect]
     Active Substance: TETRABENAZINE
     Indication: DYSKINESIA
     Dosage: 2 IN MORNING, 1 AT EVENING, 2?AT NIGHT
     Route: 048
     Dates: start: 20160913

REACTIONS (5)
  - Gastrointestinal pain [Unknown]
  - Condition aggravated [Unknown]
  - Off label use [Unknown]
  - Small intestinal obstruction [Unknown]
  - Blood pressure fluctuation [Unknown]

NARRATIVE: CASE EVENT DATE: 2017
